FAERS Safety Report 7820551-7 (Version None)
Quarter: 2011Q4

REPORT INFORMATION
  Report Type: 
  Country: None (occurrence: None)
  Receive Date: 20111018
  Receipt Date: 20111010
  Transmission Date: 20120403
  Serious: Yes (Hospitalization)
  Sender: FDA-Public Use
  Company Number: PHEH2011US04725

PATIENT
  Sex: Male

DRUGS (6)
  1. JANUVIA [Concomitant]
     Dosage: 100 MG, QD
  2. TASIGNA [Suspect]
     Indication: CHRONIC MYELOID LEUKAEMIA
  3. ATORVASTATIN [Concomitant]
     Dosage: 40 MG, QD
  4. PLAVIX [Concomitant]
     Dosage: 400 MG, BID
  5. LISINOPRIL [Concomitant]
     Dosage: 20 MG, QD
  6. FAMOTIDINE [Concomitant]
     Dosage: 40 MG, QD

REACTIONS (1)
  - PANCREATITIS [None]
